FAERS Safety Report 16205389 (Version 2)
Quarter: 2019Q2

REPORT INFORMATION
  Report Type: Report from Study
  Country: US (occurrence: US)
  Receive Date: 20190417
  Receipt Date: 20190423
  Transmission Date: 20190711
  Serious: Yes (Other)
  Sender: FDA-Public Use
  Company Number: US-BIOGEN-2019BI00725232

PATIENT
  Sex: Female

DRUGS (2)
  1. TECFIDERA [Suspect]
     Active Substance: DIMETHYL FUMARATE
     Indication: MULTIPLE SCLEROSIS
     Route: 065
  2. TECFIDERA [Suspect]
     Active Substance: DIMETHYL FUMARATE
     Route: 065
     Dates: start: 20190404

REACTIONS (5)
  - Urticaria [Not Recovered/Not Resolved]
  - Systemic lupus erythematosus [Unknown]
  - Autoimmune disorder [Unknown]
  - Paraesthesia [Unknown]
  - Flushing [Not Recovered/Not Resolved]
